FAERS Safety Report 26210684 (Version 1)
Quarter: 2025Q4

REPORT INFORMATION
  Report Type: Report from Study
  Country: CN (occurrence: CN)
  Receive Date: 20251230
  Receipt Date: 20251230
  Transmission Date: 20260118
  Serious: Yes (Other)
  Sender: ROCHE
  Company Number: CN-ROCHE-10000190514

PATIENT
  Age: 55 Year
  Sex: Female
  Weight: 45 kg

DRUGS (27)
  1. POLATUZUMAB VEDOTIN [Suspect]
     Active Substance: POLATUZUMAB VEDOTIN
     Indication: Diffuse large B-cell lymphoma
     Dosage: OTHER DRUG FREQUENCY: SOS
     Route: 041
  2. POLATUZUMAB VEDOTIN [Suspect]
     Active Substance: POLATUZUMAB VEDOTIN
     Dosage: OTHER DRUG FREQUENCY: ST
     Route: 041
  3. RITUXIMAB [Suspect]
     Active Substance: RITUXIMAB
     Indication: Diffuse large B-cell lymphoma
     Dosage: ST
     Route: 041
  4. CYCLOPHOSPHAMIDE [Suspect]
     Active Substance: CYCLOPHOSPHAMIDE
     Indication: Diffuse large B-cell lymphoma
     Dosage: OTHER DRUG FREQUENCY: SOS
     Route: 041
  5. CYCLOPHOSPHAMIDE [Suspect]
     Active Substance: CYCLOPHOSPHAMIDE
     Dosage: OTHER DRUG FREQUENCY: ST
     Route: 041
  6. DOXORUBICIN HYDROCHLORIDE [Suspect]
     Active Substance: DOXORUBICIN HYDROCHLORIDE
     Indication: Diffuse large B-cell lymphoma
     Dosage: OTHER DRUG FREQUENCY: SOS
     Route: 041
  7. PREDNISONE [Suspect]
     Active Substance: PREDNISONE
     Indication: Diffuse large B-cell lymphoma
     Route: 048
     Dates: start: 20240920, end: 20240925
  8. PREDNISONE [Suspect]
     Active Substance: PREDNISONE
     Route: 048
     Dates: start: 20241129, end: 20241204
  9. ZUBERITAMAB [Suspect]
     Active Substance: ZUBERITAMAB
     Indication: Diffuse large B-cell lymphoma
     Dosage: OTHER DRUG FREQUENCY: ST
     Route: 041
  10. Rabeprazole Sodium Enteric coated Tablets [Concomitant]
  11. FEBUXOSTAT [Concomitant]
     Active Substance: FEBUXOSTAT
  12. ENTECAVIR [Concomitant]
     Active Substance: ENTECAVIR
  13. ALMAGATE [Concomitant]
     Active Substance: ALMAGATE
  14. PROMETHAZINE HYDROCHLORIDE [Concomitant]
     Active Substance: PROMETHAZINE HYDROCHLORIDE
  15. DEXAMETHASONE SODIUM PHOSPHATE [Concomitant]
     Active Substance: DEXAMETHASONE SODIUM PHOSPHATE
  16. Netupitant and Palonosetron Hydrochloride [Concomitant]
  17. DIETARY SUPPLEMENT\HERBALS\MILK THISTLE [Concomitant]
     Active Substance: MILK THISTLE
  18. HERBALS\DIAMMONIUM GLYCYRRHIZINATE [Concomitant]
     Active Substance: HERBALS\DIAMMONIUM GLYCYRRHIZINATE
  19. LANSOPRAZOLE [Concomitant]
     Active Substance: LANSOPRAZOLE
  20. MESNA [Concomitant]
     Active Substance: MESNA
  21. ILAPRAZOLE [Concomitant]
     Active Substance: ILAPRAZOLE
  22. METHOTREXATE [Concomitant]
     Active Substance: METHOTREXATE
  23. CYTARABINE [Concomitant]
     Active Substance: CYTARABINE
  24. Sulfamethoxazole Tablets [Concomitant]
  25. ANF-RHO [Concomitant]
     Active Substance: ANF-RHO
  26. Calcium Acetate Capsules [Concomitant]
  27. Human Granulocyte Colony-stimulating Factor [Concomitant]

REACTIONS (1)
  - Myelosuppression [Recovered/Resolved]

NARRATIVE: CASE EVENT DATE: 20241211
